FAERS Safety Report 18412343 (Version 1)
Quarter: 2020Q4

REPORT INFORMATION
  Report Type: Spontaneous
  Country: CA (occurrence: CA)
  Receive Date: 20201021
  Receipt Date: 20201021
  Transmission Date: 20210114
  Serious: Yes (Other)
  Sender: FDA-Public Use
  Company Number: CA-BIOMARINAP-CA-2020-132603

PATIENT
  Age: 4 Year
  Sex: Female
  Weight: 16.5 kg

DRUGS (4)
  1. CETIRIZINE [Concomitant]
     Active Substance: CETIRIZINE HYDROCHLORIDE
     Indication: PREMEDICATION
     Dosage: 3.5 MILLIGRAM, QW
     Route: 048
  2. TYLENOL [Concomitant]
     Active Substance: ACETAMINOPHEN
     Indication: PREMEDICATION
     Dosage: 225 MILLIGRAM, QW
     Route: 048
  3. NAGLAZYME [Suspect]
     Active Substance: GALSULFASE
     Indication: MUCOPOLYSACCHARIDOSIS VI
     Dosage: 1 MILLIGRAM/KILOGRAM, QW
     Route: 042
     Dates: start: 20191001
  4. EMLA [Concomitant]
     Active Substance: LIDOCAINE\PRILOCAINE
     Indication: PREMEDICATION
     Dosage: UNK, QW
     Route: 061

REACTIONS (5)
  - Astigmatism [Not Recovered/Not Resolved]
  - Joint contracture [Not Recovered/Not Resolved]
  - Corneal opacity [Not Recovered/Not Resolved]
  - Hypoacusis [Recovered/Resolved]
  - Spinal deformity [Recovered/Resolved]

NARRATIVE: CASE EVENT DATE: 202001
